FAERS Safety Report 5591766-6 (Version None)
Quarter: 2008Q1

REPORT INFORMATION
  Report Type: 
  Country: None (occurrence: None)
  Receive Date: 20080115
  Receipt Date: 20080111
  Transmission Date: 20080703
  Serious: Yes (Other)
  Sender: FDA-Public Use
  Company Number: A0703069A

PATIENT
  Age: 31 Year
  Sex: Female
  Weight: 45 kg

DRUGS (1)
  1. ZOVIRAX [Suspect]
     Indication: ORAL HERPES
     Route: 061
     Dates: start: 20071115, end: 20071115

REACTIONS (2)
  - DYSPNOEA [None]
  - LARYNGEAL OEDEMA [None]
